FAERS Safety Report 16930739 (Version 1)
Quarter: 2019Q4

REPORT INFORMATION
  Report Type: Spontaneous
  Country: US (occurrence: US)
  Receive Date: 20191017
  Receipt Date: 20191017
  Transmission Date: 20200122
  Serious: Yes (Hospitalization, Other)
  Sender: FDA-Public Use
  Company Number: US-HIKMA PHARMACEUTICALS USA INC.-US-H14001-19-49387

PATIENT
  Age: 33 Year
  Sex: Male

DRUGS (2)
  1. IRINOTECAN [Suspect]
     Active Substance: IRINOTECAN
     Indication: METASTASES TO LUNG
     Dosage: AT SLIGHTLY REDUCED DOSE; CYCLICAL
     Route: 065
     Dates: start: 201508, end: 201510
  2. BEVACIZUMAB. [Suspect]
     Active Substance: BEVACIZUMAB
     Indication: ADENOCARCINOMA OF COLON
     Dosage: CYCLICAL
     Route: 065
     Dates: start: 201508, end: 201510

REACTIONS (4)
  - Drug intolerance [Unknown]
  - Blood creatinine increased [Unknown]
  - Diarrhoea [Unknown]
  - Toxicity to various agents [Unknown]

NARRATIVE: CASE EVENT DATE: 2015
